FAERS Safety Report 6299754-1 (Version None)
Quarter: 2009Q3

REPORT INFORMATION
  Report Type: 
  Country: None (occurrence: None)
  Receive Date: 20090806
  Receipt Date: 20090730
  Transmission Date: 20100115
  Serious: Yes (Hospitalization)
  Sender: FDA-Public Use
  Company Number: US-GENENTECH-287804

PATIENT
  Sex: Female

DRUGS (2)
  1. HERCEPTIN [Suspect]
     Indication: BREAST CANCER
     Dosage: 4 MG/KG, X1
     Route: 042
  2. HERCEPTIN [Suspect]
     Dosage: 2 MG/KG, Q2W
     Route: 042

REACTIONS (2)
  - IMPAIRED HEALING [None]
  - INFECTION [None]
